FAERS Safety Report 8709785 (Version 2)
Quarter: 2012Q4

REPORT INFORMATION
  Report Type: 
  Country: US (occurrence: US)
  Receive Date: 20120806
  Receipt Date: 20121126
  Transmission Date: 20130627
  Serious: Yes (Hospitalization, Other)
  Sender: FDA-Public Use
  Company Number: US-009507513-1208USA000245

PATIENT

DRUGS (5)
  1. NUVARING [Suspect]
     Indication: CONTRACEPTION
     Dosage: UNK
     Route: 067
     Dates: start: 20070404, end: 200804
  2. NUVARING [Suspect]
     Indication: MENSTRUATION IRREGULAR
     Dosage: UNK
     Route: 067
     Dates: start: 20090306, end: 20100904
  3. PREDNISONE [Concomitant]
     Indication: INFLAMMATION
     Dosage: 20 mg, bid
     Route: 048
     Dates: start: 20100825, end: 201009
  4. TRAMADOL HYDROCHLORIDE [Concomitant]
     Indication: PAIN
     Dosage: 50 mg, prn
     Dates: start: 20100728, end: 201009
  5. IBUPROFEN [Concomitant]
     Indication: PAIN
     Dosage: 800 mg, prn
     Dates: start: 20100825, end: 201009

REACTIONS (15)
  - Aortic embolus [Recovered/Resolved with Sequelae]
  - Deep vein thrombosis [Recovered/Resolved with Sequelae]
  - Sacroiliitis [Unknown]
  - Off label use [Unknown]
  - Seronegative arthritis [Unknown]
  - Rheumatic disorder [Unknown]
  - Urinary tract infection [Unknown]
  - Wisdom teeth removal [Unknown]
  - Syncope [Unknown]
  - Ulcer haemorrhage [Unknown]
  - Nasopharyngitis [Unknown]
  - Oropharyngeal pain [Unknown]
  - Cough [Unknown]
  - Hypoxia [Unknown]
  - Loss of consciousness [Unknown]
